FAERS Safety Report 5273297-6 (Version None)
Quarter: 2007Q1

REPORT INFORMATION
  Report Type: 
  Country: None (occurrence: None)
  Receive Date: 20070319
  Receipt Date: 20070305
  Transmission Date: 20070707
  Serious: Yes (Life-Threatening)
  Sender: FDA-Public Use
  Company Number: 07H-122-0312244-00

PATIENT
  Age: 78 Year
  Sex: Male

DRUGS (15)
  1. PROPOFOL [Suspect]
     Indication: SEDATION
     Dates: start: 20060320, end: 20060324
  2. CAPTOPRIL [Concomitant]
  3. ACTRAPID [Concomitant]
  4. METRONIDAZOLE [Concomitant]
  5. DIURAL (FUROSEMIDE) [Concomitant]
  6. NYCOPLUS FERRO-RETARD [Concomitant]
  7. FOLIC ACID [Concomitant]
  8. PANTOPRAZOLE SODIUM [Concomitant]
  9. LAKTULOSE (LACTULOSE) [Concomitant]
  10. AFIPRAN (METOCLOPRAMIDE HYDROCHLORIDE) [Concomitant]
  11. LIPITOR [Concomitant]
  12. NEBCIN [Concomitant]
  13. METOPROLOL SUCCINATE [Concomitant]
  14. PENTREXYL [Concomitant]
  15. MAGNESIUMSULFAT BRAUN [Concomitant]

REACTIONS (5)
  - BRADYCARDIA [None]
  - CARDIAC ARREST [None]
  - PNEUMONIA [None]
  - TORSADE DE POINTES [None]
  - VENTRICULAR FIBRILLATION [None]
